FAERS Safety Report 4828107-5 (Version None)
Quarter: 2005Q4

REPORT INFORMATION
  Report Type: 
  Country: None (occurrence: None)
  Receive Date: 20051110
  Receipt Date: 20051012
  Transmission Date: 20060501
  Serious: Yes (Other)
  Sender: FDA-Public Use
  Company Number: 2005134528

PATIENT
  Age: 43 Year
  Sex: Female

DRUGS (2)
  1. IRINOTECAN HCL [Suspect]
     Indication: BREAST CANCER RECURRENT
     Dosage: 100 MG/M2 (1 IN 1 WK), INTRAVENOUS
     Route: 042
     Dates: start: 20040701
  2. DRUG, UNSPECIFIED (DRUG, UNSPECIFIED) [Suspect]
     Indication: ILL-DEFINED DISORDER

REACTIONS (3)
  - BREAST CANCER METASTATIC [None]
  - DUODENAL ULCER PERFORATION [None]
  - MALIGNANT NEOPLASM PROGRESSION [None]
